FAERS Safety Report 7130480-2 (Version None)
Quarter: 2010Q4

REPORT INFORMATION
  Report Type: 
  Country: None (occurrence: None)
  Receive Date: 20101201
  Receipt Date: 20101118
  Transmission Date: 20110411
  Serious: Yes (Hospitalization)
  Sender: FDA-Public Use
  Company Number: PHHY2010US79154

PATIENT
  Sex: Female

DRUGS (1)
  1. VALTURNA [Suspect]
     Dosage: UNK
     Dates: start: 20101116, end: 20101118

REACTIONS (2)
  - DYSPNOEA [None]
  - RESPIRATORY DISORDER [None]
